FAERS Safety Report 6462511-7 (Version None)
Quarter: 2009Q4

REPORT INFORMATION
  Report Type: 
  Country: None (occurrence: None)
  Receive Date: 20091130
  Receipt Date: 20091112
  Transmission Date: 20100525
  Serious: Yes (Disabling)
  Sender: FDA-Public Use
  Company Number: DK-BAYER-200939196GPV

PATIENT
  Age: 67 Year
  Sex: Male

DRUGS (1)
  1. GADOLINIUM BASED CONTRAST UNKNOWN [Suspect]
     Indication: SCAN WITH CONTRAST
     Route: 042
     Dates: start: 20050117, end: 20050117

REACTIONS (3)
  - NEPHROGENIC SYSTEMIC FIBROSIS [None]
  - PULMONARY HYPERTENSION [None]
  - RESPIRATORY FAILURE [None]
